FAERS Safety Report 24850715 (Version 1)
Quarter: 2025Q1

REPORT INFORMATION
  Report Type: Spontaneous
  Country: FR (occurrence: FR)
  Receive Date: 20250116
  Receipt Date: 20250116
  Transmission Date: 20250409
  Serious: Yes (Death, Hospitalization, Other)
  Sender: PFIZER
  Company Number: None

PATIENT
  Age: 71 Year
  Sex: Male
  Weight: 90 kg

DRUGS (20)
  1. CARBOPLATIN [Suspect]
     Active Substance: CARBOPLATIN
     Indication: Non-small cell lung cancer metastatic
     Route: 042
     Dates: start: 20240412, end: 20240412
  2. PACLITAXEL [Suspect]
     Active Substance: PACLITAXEL
     Indication: Non-small cell lung cancer metastatic
     Dosage: 159 MG, QW
     Route: 042
     Dates: start: 20240412, end: 20240419
  3. PREDNISONE [Suspect]
     Active Substance: PREDNISONE
     Dosage: 100 MG, QD
     Route: 048
     Dates: start: 20240327
  4. PREDNISONE [Suspect]
     Active Substance: PREDNISONE
     Dosage: 20 MG, QW
     Route: 048
  5. PREDNISOLONE [Suspect]
     Active Substance: PREDNISOLONE
  6. DULOXETINE [Concomitant]
     Active Substance: DULOXETINE
     Dosage: 1 DF, HS
  7. OXYCODONE [Concomitant]
     Active Substance: OXYCODONE
  8. OXYCODONE [Concomitant]
     Active Substance: OXYCODONE
  9. ACETAMINOPHEN [Concomitant]
     Active Substance: ACETAMINOPHEN
     Indication: Analgesic therapy
  10. SORIATANE [Concomitant]
     Active Substance: ACITRETIN
     Dosage: 3 DF, QD
  11. CLOBETASOL PROPIONATE [Concomitant]
     Active Substance: CLOBETASOL PROPIONATE
  12. BISOPROLOL [Concomitant]
     Active Substance: BISOPROLOL
     Dosage: 1 DF, QD
  13. HYDROCHLOROTHIAZIDE [Concomitant]
     Active Substance: HYDROCHLOROTHIAZIDE
     Dosage: 1 DF, QD
  14. ENALAPRIL [Concomitant]
     Active Substance: ENALAPRIL
     Dosage: 1 DF, QD
  15. PANTOPRAZOLE [Concomitant]
     Active Substance: PANTOPRAZOLE
     Dosage: 1 DF, QD
  16. PRIMPERAN [Concomitant]
     Active Substance: METOCLOPRAMIDE HYDROCHLORIDE
  17. OXAZEPAM [Concomitant]
     Active Substance: OXAZEPAM
  18. METHYLPREDNISOLONE [Concomitant]
     Active Substance: METHYLPREDNISOLONE
     Dates: end: 20240528
  19. BACTRIM [Concomitant]
     Active Substance: SULFAMETHOXAZOLE\TRIMETHOPRIM
     Dates: end: 20240528
  20. VORICONAZOLE [Concomitant]
     Active Substance: VORICONAZOLE

REACTIONS (5)
  - Lung disorder [Fatal]
  - Thrombocytopenia [Unknown]
  - Pneumonitis [Unknown]
  - Bronchopulmonary aspergillosis [Unknown]
  - Off label use [Unknown]

NARRATIVE: CASE EVENT DATE: 20240426
